FAERS Safety Report 19473043 (Version 2)
Quarter: 2021Q3

REPORT INFORMATION
  Report Type: Spontaneous
  Country: US (occurrence: US)
  Receive Date: 20210629
  Receipt Date: 20210816
  Transmission Date: 20211014
  Serious: Yes (Other)
  Sender: FDA-Public Use
  Company Number: US-TAKEDA-2021TUS038771

PATIENT
  Age: 6 Year
  Sex: Female

DRUGS (4)
  1. GATTEX [Suspect]
     Active Substance: TEDUGLUTIDE\WATER
     Indication: CONGENITAL MEGACOLON
     Dosage: UNK
     Route: 065
     Dates: start: 202101
  2. GATTEX [Suspect]
     Active Substance: TEDUGLUTIDE\WATER
     Indication: CONGENITAL MEGACOLON
     Dosage: UNK
     Route: 065
     Dates: start: 202101
  3. GATTEX [Suspect]
     Active Substance: TEDUGLUTIDE\WATER
     Indication: CONGENITAL MEGACOLON
     Dosage: UNK
     Route: 065
     Dates: start: 202101
  4. GATTEX [Suspect]
     Active Substance: TEDUGLUTIDE\WATER
     Indication: CONGENITAL MEGACOLON
     Dosage: UNK
     Route: 065
     Dates: start: 202101

REACTIONS (4)
  - Anaemia [Unknown]
  - Gastrointestinal stoma complication [Unknown]
  - Large intestine polyp [Unknown]
  - Stoma site haemorrhage [Unknown]
